FAERS Safety Report 4860798-5 (Version None)
Quarter: 2005Q4

REPORT INFORMATION
  Report Type: 
  Country: None (occurrence: None)
  Receive Date: 20051216
  Receipt Date: 20051216
  Transmission Date: 20060501
  Serious: Yes (Life-Threatening, Hospitalization)
  Sender: FDA-Public Use
  Company Number: None

PATIENT
  Age: 17 Year
  Sex: Female
  Weight: 52.6173 kg

DRUGS (2)
  1. EFFEXOR XR [Suspect]
     Indication: ATTENTION DEFICIT/HYPERACTIVITY DISORDER
     Dosage: 150MG   B.I.D.   PO
     Route: 048
     Dates: start: 19990714, end: 20050713
  2. EFFEXOR XR [Suspect]
     Indication: DEPRESSION
     Dosage: 150MG   B.I.D.   PO
     Route: 048
     Dates: start: 19990714, end: 20050713

REACTIONS (5)
  - DRUG DEPENDENCE [None]
  - FEELING ABNORMAL [None]
  - MANIA [None]
  - PSYCHOTIC DISORDER [None]
  - SUICIDAL IDEATION [None]
